FAERS Safety Report 9935454 (Version 3)
Quarter: 2014Q1

REPORT INFORMATION
  Report Type: Spontaneous
  Country: US (occurrence: US)
  Receive Date: 20140228
  Receipt Date: 20140319
  Transmission Date: 20141002
  Serious: No
  Sender: FDA-Public Use
  Company Number: US-PFIZER INC-2014055050

PATIENT
  Age: 53 Year
  Sex: Female
  Weight: 90.7 kg

DRUGS (15)
  1. XELJANZ [Suspect]
     Indication: RHEUMATOID ARTHRITIS
     Dosage: 5 MG, 2X/DAY
     Route: 048
     Dates: start: 201310, end: 201403
  2. MEDROL [Concomitant]
     Dosage: 2 MG, UNK
  3. PLAQUENIL [Concomitant]
     Dosage: 200 MG, UNK
  4. ZOLOFT [Concomitant]
     Dosage: 50 MG, UNK
  5. METHOTREXATE [Concomitant]
     Dosage: 2.5 MG, UNK
  6. TRAMADOL [Concomitant]
     Dosage: 50 MG, UNK
  7. ATENOLOL [Concomitant]
     Dosage: 50 MG, UNK
  8. LISINOPRIL [Concomitant]
     Dosage: 10 MG, UNK
  9. SIMVASTATIN [Concomitant]
     Dosage: 20 MG, UNK
  10. ACTONEL [Concomitant]
     Dosage: 30 MG, UNK
  11. PREVACID [Concomitant]
     Dosage: 15 MG, UNK
  12. FISH OIL [Concomitant]
     Dosage: UNK
  13. VITAMIN D [Concomitant]
     Dosage: 1000 IU, UNK
  14. FOLIC ACID [Concomitant]
     Dosage: UNK
  15. MECLIZINE [Concomitant]
     Dosage: UNK

REACTIONS (4)
  - Fatigue [Unknown]
  - Nausea [Unknown]
  - Drug ineffective [Unknown]
  - Rheumatoid factor increased [Unknown]
